FAERS Safety Report 17644682 (Version 6)
Quarter: 2020Q2

REPORT INFORMATION
  Report Type: Report from Study
  Country: DK (occurrence: DK)
  Receive Date: 20200408
  Receipt Date: 20200625
  Transmission Date: 20200713
  Serious: Yes (Life-Threatening, Hospitalization)
  Sender: FDA-Public Use
  Company Number: DK-ROCHE-2566973

PATIENT
  Age: 75 Year
  Sex: Male
  Weight: 66.8 kg

DRUGS (103)
  1. LIDOCAINE. [Concomitant]
     Active Substance: LIDOCAINE
     Indication: ANALGESIC THERAPY
     Route: 058
     Dates: start: 20200313, end: 20200318
  2. LAXOBERAL [Concomitant]
     Active Substance: SODIUM PICOSULFATE
     Indication: CONSTIPATION
     Route: 048
     Dates: start: 20200306, end: 20200416
  3. DALTEPARIN [Concomitant]
     Active Substance: DALTEPARIN
     Indication: THROMBOSIS
     Route: 058
     Dates: start: 20200313, end: 20200326
  4. PROPOFOL. [Concomitant]
     Active Substance: PROPOFOL
     Route: 042
     Dates: start: 20200313, end: 20200313
  5. BUPIVACAIN [Concomitant]
     Active Substance: BUPIVACAINE
     Dosage: USED IN GENERAL ANESTHESIA
     Route: 008
     Dates: start: 20200313, end: 20200313
  6. KETOROLAC [Concomitant]
     Active Substance: KETOROLAC TROMETHAMINE
     Indication: PAIN
     Route: 042
     Dates: start: 20200313, end: 20200316
  7. KETOROLAC [Concomitant]
     Active Substance: KETOROLAC TROMETHAMINE
     Route: 042
     Dates: start: 20200420, end: 20200420
  8. NALOXON [Concomitant]
     Active Substance: NALOXONE HYDROCHLORIDE
     Dosage: ABOLITION OF RESPIRATORY DEPRESSION
     Route: 042
     Dates: start: 20200316, end: 20200316
  9. DROPERIDOL. [Concomitant]
     Active Substance: DROPERIDOL
     Route: 042
     Dates: start: 20200420, end: 20200420
  10. BERODUAL [Concomitant]
     Active Substance: FENOTEROL HYDROBROMIDE\IPRATROPIUM BROMIDE
     Route: 050
     Dates: start: 20200316, end: 20200316
  11. BERODUAL [Concomitant]
     Active Substance: FENOTEROL HYDROBROMIDE\IPRATROPIUM BROMIDE
     Route: 050
     Dates: start: 20200420, end: 20200420
  12. ATROPINE. [Concomitant]
     Active Substance: ATROPINE
     Dosage: BRADYCARDIA DURING ANESTHESIA
     Route: 042
     Dates: start: 20200420, end: 20200420
  13. SUXAMETHONIUM [Concomitant]
     Active Substance: SUCCINYLCHOLINE
     Indication: GENERAL ANAESTHESIA
     Route: 042
     Dates: start: 20200316, end: 20200316
  14. PARACETAMOL [Concomitant]
     Active Substance: ACETAMINOPHEN
     Route: 048
     Dates: start: 20200429
  15. LIDOCAINE. [Concomitant]
     Active Substance: LIDOCAINE
     Indication: ANAL PRURITUS
     Route: 062
     Dates: start: 20161205
  16. LIDOCAINE. [Concomitant]
     Active Substance: LIDOCAINE
     Route: 058
     Dates: start: 20200420, end: 20200420
  17. LOSARTAN. [Concomitant]
     Active Substance: LOSARTAN
     Indication: HYPERTENSION
     Route: 048
     Dates: start: 20190821, end: 20200417
  18. JARDIANCE [Concomitant]
     Active Substance: EMPAGLIFLOZIN
     Indication: TYPE 2 DIABETES MELLITUS
     Route: 048
     Dates: start: 20190325, end: 20200310
  19. JARDIANCE [Concomitant]
     Active Substance: EMPAGLIFLOZIN
     Route: 048
     Dates: start: 20200325, end: 20200417
  20. NOVORAPID [Concomitant]
     Active Substance: INSULIN ASPART
     Route: 042
     Dates: start: 20200309, end: 20200424
  21. FUROSEMID [FUROSEMIDE] [Concomitant]
     Active Substance: FUROSEMIDE
     Indication: OEDEMA
     Route: 042
     Dates: start: 20200309, end: 20200422
  22. REMIFENTANIL [Concomitant]
     Active Substance: REMIFENTANIL
     Indication: GENERAL ANAESTHESIA
     Route: 042
     Dates: start: 20200420, end: 20200420
  23. PETIDIN [PETHIDINE] [Concomitant]
     Indication: GENERAL ANAESTHESIA
     Route: 042
     Dates: start: 20200420, end: 20200420
  24. CYANOCOBALAMIN. [Concomitant]
     Active Substance: CYANOCOBALAMIN
     Route: 048
     Dates: start: 20180320
  25. PHOSPHORIC ACID [Concomitant]
     Active Substance: PHOSPHORIC ACID
     Dosage: 20 UNIT NOT REPORTED?SUPPLEMENT
     Route: 042
     Dates: start: 20200319, end: 20200324
  26. ZOPICLON [Concomitant]
     Active Substance: ZOPICLONE
     Indication: INSOMNIA
     Route: 048
     Dates: start: 20200323, end: 20200326
  27. CEFUROXIM [CEFUROXIME] [Concomitant]
     Active Substance: CEFUROXIME
     Route: 042
     Dates: start: 20200420, end: 20200429
  28. MORPHINE [Concomitant]
     Active Substance: MORPHINE
     Route: 042
     Dates: start: 20200420, end: 20200429
  29. NALOXON [Concomitant]
     Active Substance: NALOXONE HYDROCHLORIDE
     Dosage: ABOLITION OF RESPIRATORY DEPRESSION
     Route: 042
     Dates: start: 20200313, end: 20200313
  30. ADRENALINE;LIDOCAINE [Concomitant]
     Indication: EPIDURAL ANALGESIA
     Route: 008
     Dates: start: 20200313, end: 20200313
  31. GABAPENTIN. [Concomitant]
     Active Substance: GABAPENTIN
     Indication: PAIN
     Route: 048
     Dates: start: 20200420, end: 20200422
  32. METFORMIN [Concomitant]
     Active Substance: METFORMIN HYDROCHLORIDE
     Indication: DIABETES MELLITUS
     Route: 048
  33. SUFENTANIL [Concomitant]
     Active Substance: SUFENTANIL
     Route: 042
     Dates: start: 20200313, end: 20200313
  34. SUFENTANIL [Concomitant]
     Active Substance: SUFENTANIL
     Route: 042
     Dates: start: 20200316, end: 20200316
  35. EPHEDRINE. [Concomitant]
     Active Substance: EPHEDRINE
     Dosage: LOW BLOODPRESURE DURING ANESTHESIA
     Route: 042
     Dates: start: 20200420, end: 20200420
  36. DEXAMETHASONE. [Concomitant]
     Active Substance: DEXAMETHASONE
     Route: 042
     Dates: start: 20200320, end: 20200320
  37. IBUPROFEN. [Concomitant]
     Active Substance: IBUPROFEN
     Indication: PAIN
     Route: 048
     Dates: start: 20200317, end: 20200319
  38. PANTOPRAZOLE [Concomitant]
     Active Substance: PANTOPRAZOLE
     Indication: ULCER
     Dosage: GASTRIC ACID
     Route: 048
     Dates: start: 20200319, end: 20200326
  39. CALCIUM GLUCONATE. [Concomitant]
     Active Substance: CALCIUM GLUCONATE
     Indication: HYPOCALCAEMIA
     Dosage: 4.5 OTHER
     Route: 042
     Dates: start: 20200420, end: 20200429
  40. FLUCONAZOLE. [Concomitant]
     Active Substance: FLUCONAZOLE
     Dosage: FUNGUS
     Route: 048
     Dates: start: 20200425, end: 20200429
  41. VENETOCLAX. [Suspect]
     Active Substance: VENETOCLAX
     Indication: CHRONIC LYMPHOCYTIC LEUKAEMIA
     Dosage: ON 23/DEC/2016, HE RECEIVED RECENT DOSE OF VENETOCLAX.
     Route: 048
     Dates: start: 20160211
  42. PHENERGAN [Concomitant]
     Active Substance: PROMETHAZINE HYDROCHLORIDE
     Indication: INSOMNIA
     Route: 048
     Dates: start: 20200112
  43. THIAMINE. [Concomitant]
     Active Substance: THIAMINE
     Indication: VITAMIN SUPPLEMENTATION
     Route: 048
     Dates: start: 20200309, end: 20200318
  44. POTASSIUM CHLORIDE. [Concomitant]
     Active Substance: POTASSIUM CHLORIDE
     Route: 048
     Dates: start: 20200311, end: 20200427
  45. RINGER-ACETAT [Concomitant]
     Route: 042
     Dates: start: 20200309, end: 20200423
  46. DALTEPARIN [Concomitant]
     Active Substance: DALTEPARIN
     Route: 058
     Dates: start: 20200420, end: 20200429
  47. MORPHINE [Concomitant]
     Active Substance: MORPHINE
     Route: 058
     Dates: start: 20200313, end: 20200326
  48. MORPHINE [Concomitant]
     Active Substance: MORPHINE
     Route: 058
     Dates: start: 20200420, end: 20200429
  49. PROPOFOL. [Concomitant]
     Active Substance: PROPOFOL
     Indication: GENERAL ANAESTHESIA
     Route: 042
     Dates: start: 20200420, end: 20200420
  50. BUPIVACAIN [Concomitant]
     Active Substance: BUPIVACAINE
     Dosage: USED IN GENERAL ANESTHESIA
     Route: 008
     Dates: start: 20200420, end: 20200420
  51. ALBUMIN [Concomitant]
     Active Substance: ALBUMIN HUMAN
     Dosage: USED DURING GENERAL ANESTHESIA
     Route: 042
     Dates: start: 20200313, end: 20200313
  52. EPHEDRINE. [Concomitant]
     Active Substance: EPHEDRINE
     Dosage: LOW BLOODPRESURE DURING ANESTHESIA
     Route: 042
     Dates: start: 20200313, end: 20200313
  53. EPHEDRINE. [Concomitant]
     Active Substance: EPHEDRINE
     Dosage: LOW BLOODPRESURE DURING ANESTHESIA
     Route: 042
     Dates: start: 20200316, end: 20200316
  54. TINZAPARIN [Concomitant]
     Active Substance: TINZAPARIN
     Route: 058
     Dates: start: 20200314, end: 20200314
  55. LOPERAMID [Concomitant]
     Active Substance: LOPERAMIDE
     Indication: DIARRHOEA
     Route: 048
     Dates: start: 20200324, end: 20200326
  56. PARACETAMOL [Concomitant]
     Active Substance: ACETAMINOPHEN
     Indication: MUSCULOSKELETAL PAIN
     Route: 048
     Dates: start: 20160916
  57. PARACETAMOL [Concomitant]
     Active Substance: ACETAMINOPHEN
     Route: 048
     Dates: start: 20200420, end: 20200429
  58. CLEMASTINE [Concomitant]
     Active Substance: CLEMASTINE
     Indication: ANAPHYLACTIC SHOCK
     Route: 042
     Dates: start: 20200308, end: 20200308
  59. POTASSIUM CHLORIDE. [Concomitant]
     Active Substance: POTASSIUM CHLORIDE
     Route: 048
     Dates: start: 20200309, end: 20200322
  60. NOVORAPID [Concomitant]
     Active Substance: INSULIN ASPART
     Route: 058
     Dates: start: 20200310, end: 20200324
  61. MORPHINE [Concomitant]
     Active Substance: MORPHINE
     Route: 048
     Dates: start: 20200420, end: 20200429
  62. SUFENTANIL [Concomitant]
     Active Substance: SUFENTANIL
     Indication: PAIN
     Route: 042
     Dates: start: 20200420, end: 20200420
  63. REMIFENTANIL [Concomitant]
     Active Substance: REMIFENTANIL
     Route: 042
     Dates: start: 20200313, end: 20200313
  64. PHENYLEPHRINE [Concomitant]
     Active Substance: PHENYLEPHRINE HYDROCHLORIDE
     Indication: GENERAL ANAESTHESIA
     Route: 042
     Dates: start: 20200420, end: 20200420
  65. PHENYLEPHRINE [Concomitant]
     Active Substance: PHENYLEPHRINE HYDROCHLORIDE
     Route: 042
     Dates: start: 20200313, end: 20200313
  66. ONDANSETRON [Concomitant]
     Active Substance: ONDANSETRON
     Indication: PROCEDURAL NAUSEA
     Route: 042
     Dates: start: 20200313, end: 20200317
  67. BUPIVACAIN [Concomitant]
     Active Substance: BUPIVACAINE
     Dosage: USED IN GENERAL ANESTHESIA
     Route: 058
     Dates: start: 20200420, end: 20200420
  68. DEXAMETHASONE. [Concomitant]
     Active Substance: DEXAMETHASONE
     Indication: PROCEDURAL NAUSEA
     Route: 042
     Dates: start: 20200313, end: 20200313
  69. ATROPINE. [Concomitant]
     Active Substance: ATROPINE
     Dosage: BRADYCARDIA DURING ANESTHESIA
     Route: 042
     Dates: start: 20200313, end: 20200313
  70. ATROPINE. [Concomitant]
     Active Substance: ATROPINE
     Dosage: BRADYCARDIA DURING ANESTHESIA
     Route: 042
     Dates: start: 20200316, end: 20200316
  71. ADRENALINE;LIDOCAINE [Concomitant]
     Route: 008
     Dates: start: 20200420, end: 20200420
  72. MAGNESIUMHYDROXIDE [Concomitant]
     Route: 048
     Dates: start: 20200420, end: 20200429
  73. KABIVEN [Concomitant]
     Active Substance: AMINO ACIDS\ANHYDROUS DEXTROSE\CALCIUM CHLORIDE\MAGNESIUM SULFATE HEPTAHYDRATE\POTASSIUM CHLORIDE\SODIUM ACETATE\SODIUM GLYCEROPHOSPHATE ANHYDROUS\SOYBEAN OIL
     Indication: PARENTERAL NUTRITION
     Route: 042
     Dates: start: 20200318, end: 20200326
  74. PANTOPRAZOLE [Concomitant]
     Active Substance: PANTOPRAZOLE
     Dosage: GASTRIC ACID
     Route: 048
     Dates: start: 20200414, end: 20200506
  75. OBINUTUZUMAB. [Suspect]
     Active Substance: OBINUTUZUMAB
     Indication: CHRONIC LYMPHOCYTIC LEUKAEMIA
     Dosage: ON 15/JUN/2016, AT 8:50, HE RECEIVED RECENT DOSE OF OBINUTUZUMAB.
     Route: 042
     Dates: start: 20160121
  76. PARACETAMOL [Concomitant]
     Active Substance: ACETAMINOPHEN
     Route: 048
     Dates: start: 20200313, end: 20200316
  77. FLUOCORTOLONE [Concomitant]
     Active Substance: FLUOCORTOLONE
     Indication: ANAL PRURITUS
     Route: 062
     Dates: start: 20161205
  78. POTASSIUM CHLORIDE. [Concomitant]
     Active Substance: POTASSIUM CHLORIDE
     Route: 042
     Dates: start: 20200421, end: 20200429
  79. CEFUROXIM [CEFUROXIME] [Concomitant]
     Active Substance: CEFUROXIME
     Indication: INFECTION
     Route: 042
     Dates: start: 20200313, end: 20200320
  80. ALBUMIN [Concomitant]
     Active Substance: ALBUMIN HUMAN
     Dosage: USED DURING GENERAL ANESTHESIA
     Route: 042
     Dates: start: 20200420, end: 20200420
  81. DROPERIDOL. [Concomitant]
     Active Substance: DROPERIDOL
     Indication: PROCEDURAL NAUSEA
     Route: 042
     Dates: start: 20200313, end: 20200313
  82. BERODUAL [Concomitant]
     Active Substance: FENOTEROL HYDROBROMIDE\IPRATROPIUM BROMIDE
     Indication: BRONCHOSPASM
     Route: 050
     Dates: start: 20200313, end: 20200313
  83. ALFENTANIL. [Concomitant]
     Active Substance: ALFENTANIL
     Indication: GENERAL ANAESTHESIA
     Route: 042
     Dates: start: 20200313, end: 20200313
  84. ALFENTANIL. [Concomitant]
     Active Substance: ALFENTANIL
     Route: 042
     Dates: start: 20200316, end: 20200316
  85. BETOLVEX [CYANOCOBALAMIN] [Concomitant]
     Indication: VITAMIN SUPPLEMENTATION
     Route: 048
     Dates: start: 20180320
  86. VITAMIN B [Concomitant]
     Active Substance: VITAMIN B
     Route: 048
     Dates: start: 20200421, end: 20200429
  87. NATRIUMCHLORIDE [Concomitant]
     Active Substance: SODIUM CHLORIDE
     Route: 042
     Dates: start: 20200308, end: 20200425
  88. BETNOVAT [BETAMETHASONE] [Concomitant]
     Indication: RASH
     Dosage: 1 UNIT
     Route: 050
     Dates: start: 20200309
  89. MORPHINE [Concomitant]
     Active Substance: MORPHINE
     Route: 048
     Dates: start: 20200312, end: 20200326
  90. MORPHINE [Concomitant]
     Active Substance: MORPHINE
     Route: 048
     Dates: start: 20200316, end: 20200316
  91. REMIFENTANIL [Concomitant]
     Active Substance: REMIFENTANIL
     Route: 042
     Dates: start: 20200316, end: 20200316
  92. PROPOFOL. [Concomitant]
     Active Substance: PROPOFOL
     Route: 042
     Dates: start: 20200316, end: 20200316
  93. PHENYLEPHRINE [Concomitant]
     Active Substance: PHENYLEPHRINE HYDROCHLORIDE
     Route: 042
     Dates: start: 20200316, end: 20200316
  94. PETIDIN [PETHIDINE] [Concomitant]
     Route: 042
     Dates: start: 20200313, end: 20200313
  95. PETIDIN [PETHIDINE] [Concomitant]
     Route: 042
     Dates: start: 20200316, end: 20200316
  96. ONDANSETRON [Concomitant]
     Active Substance: ONDANSETRON
     Route: 042
     Dates: start: 20200420, end: 20200429
  97. NORADRENALINE [NOREPINEPHRINE] [Concomitant]
     Active Substance: NOREPINEPHRINE
     Dosage: USED DURING GENERAL ANESTHESIA
     Route: 042
     Dates: start: 20200313, end: 20200313
  98. NALOXON [Concomitant]
     Active Substance: NALOXONE HYDROCHLORIDE
     Dosage: ABOLITION OF RESPIRATORY DEPRESSION
     Route: 042
     Dates: start: 20200420, end: 20200420
  99. DROPERIDOL. [Concomitant]
     Active Substance: DROPERIDOL
     Route: 042
     Dates: start: 20200316, end: 20200316
  100. TINZAPARIN [Concomitant]
     Active Substance: TINZAPARIN
     Indication: THROMBOSIS
     Route: 058
     Dates: start: 20200313, end: 20200313
  101. MAGNESIUMHYDROXIDE [Concomitant]
     Indication: CONSTIPATION
     Route: 048
     Dates: start: 20200317, end: 20200323
  102. METOCLOPRAMIDE. [Concomitant]
     Active Substance: METOCLOPRAMIDE
     Indication: NAUSEA
     Route: 042
     Dates: start: 20200319, end: 20200323
  103. FENTANYL. [Concomitant]
     Active Substance: FENTANYL
     Indication: PAIN
     Route: 042
     Dates: start: 20200420, end: 20200420

REACTIONS (2)
  - Infection [Recovered/Resolved with Sequelae]
  - Colon cancer [Recovered/Resolved]

NARRATIVE: CASE EVENT DATE: 20200308
